FAERS Safety Report 24167886 (Version 1)
Quarter: 2024Q3

REPORT INFORMATION
  Report Type: Spontaneous
  Country: US (occurrence: US)
  Receive Date: 20240802
  Receipt Date: 20240802
  Transmission Date: 20241016
  Serious: No
  Sender: LUNDBECK
  Company Number: US-LUNDBECK-DKLU4000510

PATIENT

DRUGS (1)
  1. VYEPTI [Suspect]
     Active Substance: EPTINEZUMAB\EPTINEZUMAB-JJMR
     Indication: Migraine
     Dosage: FREQUENCY:Q12W - ONCE IN EVERY 12 WEEKS
     Route: 041
     Dates: start: 20240524

REACTIONS (3)
  - Abdominal discomfort [Unknown]
  - Migraine [Unknown]
  - Blood pressure increased [Unknown]
